FAERS Safety Report 23487804 (Version 3)
Quarter: 2024Q4

REPORT INFORMATION
  Report Type: Spontaneous
  Country: US (occurrence: US)
  Receive Date: 20240206
  Receipt Date: 20241113
  Transmission Date: 20250115
  Serious: Yes (Other)
  Sender: JOHNSON AND JOHNSON
  Company Number: US-JNJFOC-20240174447

PATIENT
  Sex: Male

DRUGS (4)
  1. INVEGA SUSTENNA [Suspect]
     Active Substance: PALIPERIDONE PALMITATE
     Indication: Schizophrenia
     Route: 030
     Dates: start: 201509, end: 202401
  2. INVEGA SUSTENNA [Suspect]
     Active Substance: PALIPERIDONE PALMITATE
     Indication: Bipolar disorder
  3. INVEGA SUSTENNA [Suspect]
     Active Substance: PALIPERIDONE PALMITATE
  4. OXYGEN [Concomitant]
     Active Substance: OXYGEN

REACTIONS (17)
  - Renal failure [Unknown]
  - Pulmonary embolism [Unknown]
  - Loss of consciousness [Unknown]
  - Hypertension [Unknown]
  - Cardiac failure congestive [Unknown]
  - Neoplasm malignant [Unknown]
  - Blood pressure decreased [Unknown]
  - Impaired quality of life [Unknown]
  - Lung disorder [Unknown]
  - Tremor [Unknown]
  - Language disorder [Unknown]
  - Penile size reduced [Unknown]
  - Heart rate increased [Unknown]
  - Off label use [Unknown]
  - Breast mass [Unknown]
  - Gynaecomastia [Unknown]
  - Presyncope [Unknown]
